FAERS Safety Report 4830374-9 (Version None)
Quarter: 2005Q4

REPORT INFORMATION
  Report Type: 
  Country: None (occurrence: None)
  Receive Date: 20051117
  Receipt Date: 20050831
  Transmission Date: 20060501
  Serious: Yes (Other)
  Sender: FDA-Public Use
  Company Number: PHEH2005US09815

PATIENT
  Age: 65 Year
  Sex: Female
  Weight: 72.108 kg

DRUGS (9)
  1. ZOMETA [Suspect]
     Indication: METASTASES TO BONE
     Dosage: 4 MG EVERY 28 DAYS
     Dates: start: 20040225, end: 20050705
  2. TAXOTERE [Concomitant]
     Indication: BREAST CANCER
     Dosage: 100MG Q21 DAYS
     Dates: start: 20040913
  3. TAXOTERE [Concomitant]
     Dosage: 75-100MG Q28D
     Dates: start: 20031112, end: 20040510
  4. NEULASTA [Concomitant]
     Indication: NEUTROPENIA
     Dosage: 6MG ON DAY 2 AFTER CHEMO
     Dates: start: 20040301
  5. NEUPOGEN [Concomitant]
  6. NAVELBINE [Concomitant]
     Indication: BREAST CANCER
     Dosage: 35MG Q28D DAYS8+15
  7. ZOLOFT [Concomitant]
     Indication: DEPRESSION
     Dosage: 50MG QD
     Dates: start: 20040201
  8. ZOFRAN [Concomitant]
     Indication: NAUSEA
     Dosage: 32MG PRIOR TO CHEMO
     Dates: start: 20031101
  9. DECADRON [Concomitant]
     Indication: NAUSEA
     Dosage: 10MG PRIOR TO CHEMO
     Dates: start: 20031112

REACTIONS (9)
  - BONE DISORDER [None]
  - EATING DISORDER [None]
  - ORAL SOFT TISSUE DISORDER [None]
  - OSTEONECROSIS [None]
  - PAIN [None]
  - SWELLING [None]
  - TOOTH ABSCESS [None]
  - TOOTH EXTRACTION [None]
  - WOUND DRAINAGE [None]
